FAERS Safety Report 18833799 (Version 2)
Quarter: 2021Q2

REPORT INFORMATION
  Report Type: Spontaneous
  Country: US (occurrence: US)
  Receive Date: 20210203
  Receipt Date: 20210430
  Transmission Date: 20210717
  Serious: No
  Sender: FDA-Public Use
  Company Number: US-GLAXOSMITHKLINE-US2021AMR019148

PATIENT
  Sex: Female

DRUGS (2)
  1. NUCALA [Suspect]
     Active Substance: MEPOLIZUMAB
     Indication: HYPEREOSINOPHILIC SYNDROME
     Dosage: 300 MG, Z,(100 MG EVERY 4 WEEKS)
     Route: 042
     Dates: start: 20201204
  2. NUCALA [Suspect]
     Active Substance: MEPOLIZUMAB
     Indication: HYPEREOSINOPHILIC SYNDROME
     Dosage: UNK
     Route: 042
     Dates: start: 20210416

REACTIONS (2)
  - Therapeutic response unexpected [Unknown]
  - Injection site swelling [Unknown]
